FAERS Safety Report 8234896-2 (Version None)
Quarter: 2012Q1

REPORT INFORMATION
  Report Type: 
  Country: None (occurrence: None)
  Receive Date: 20120326
  Receipt Date: 20120314
  Transmission Date: 20120608
  Serious: Yes (Other)
  Sender: FDA-Public Use
  Company Number: JP-PFIZER INC-2012075672

PATIENT
  Age: 80 Year
  Sex: Male

DRUGS (1)
  1. ESTRACYT [Suspect]
     Indication: PROSTATE CANCER
     Dosage: 156.7 MG, 1X/DAY
     Route: 048
     Dates: start: 20120101

REACTIONS (2)
  - ASPARTATE AMINOTRANSFERASE INCREASED [None]
  - PLATELET COUNT DECREASED [None]
